FAERS Safety Report 9470417 (Version 2)
Quarter: 2013Q3

REPORT INFORMATION
  Report Type: Spontaneous
  Country: CN (occurrence: None)
  Receive Date: 20130815
  Receipt Date: 20130822
  Transmission Date: 20140515
  Serious: Yes (Other)
  Sender: FDA-Public Use
  Company Number: MYCO20130002

PATIENT
  Age: 39 Year
  Sex: Male

DRUGS (2)
  1. MYCOPHENOLATE MOFETIL [Suspect]
     Indication: IMMUNOSUPPRESSANT DRUG THERAPY
  2. PREDNISONE [Suspect]
     Indication: IMMUNOSUPPRESSANT DRUG THERAPY

REACTIONS (4)
  - Rectal cancer metastatic [None]
  - Complications of transplanted kidney [None]
  - Metastases to liver [None]
  - Metastases to lymph nodes [None]
